FAERS Safety Report 26048378 (Version 1)
Quarter: 2025Q4

REPORT INFORMATION
  Report Type: Spontaneous
  Country: US (occurrence: US)
  Receive Date: 20251114
  Receipt Date: 20251114
  Transmission Date: 20260118
  Serious: Yes (Death, Other)
  Sender: INCYTE
  Company Number: US-INCYTE CORPORATION-2025IN012644

PATIENT
  Age: 12 Year

DRUGS (1)
  1. JAKAFI [Suspect]
     Active Substance: RUXOLITINIB
     Indication: Acute lymphocytic leukaemia
     Dosage: 15 MILLIGRAM, QD (TAKE 1 TABLET (5MG) EVERY MORNING AND 2 TABLETS (5MG) AT BEDTIME)
     Route: 065

REACTIONS (2)
  - Death [Fatal]
  - Off label use [Unknown]
